FAERS Safety Report 5345683-7 (Version None)
Quarter: 2007Q2

REPORT INFORMATION
  Report Type: 
  Country: None (occurrence: None)
  Receive Date: 20070430
  Receipt Date: 20070118
  Transmission Date: 20071010
  Serious: No
  Sender: FDA-Public Use
  Company Number: 260291

PATIENT
  Age: 59 Year
  Sex: Male
  Weight: 122.4 kg

DRUGS (8)
  1. LEVEMIR [Suspect]
     Indication: DIABETES MELLITUS INSULIN-DEPENDENT
     Dosage: 120 IU, QD, SUBCUTANEOUS
     Route: 058
     Dates: start: 20061218
  2. NOVOLOG FLEXPEN (INSULIN ASPART) SOLUTION FOR INJECTION [Concomitant]
  3. LANTUS [Concomitant]
  4. CRESTOR /01588601/(ROSUVASTATIN) [Concomitant]
  5. ASPIRIN [Concomitant]
  6. LISINOPRIL (LISONOPRIL) [Concomitant]
  7. FUROSEMIDE [Concomitant]
  8. POTASSIUM (POTASSIUM) [Concomitant]

REACTIONS (1)
  - BLOOD GLUCOSE INCREASED [None]
